FAERS Safety Report 9934365 (Version 1)
Quarter: 2014Q1

REPORT INFORMATION
  Report Type: Report from Study
  Country: GB (occurrence: GB)
  Receive Date: 20140228
  Receipt Date: 20140228
  Transmission Date: 20141002
  Serious: Yes (Other)
  Sender: FDA-Public Use
  Company Number: GB-BAYER-2014-031309

PATIENT
  Age: 41 Year
  Sex: Male

DRUGS (1)
  1. BETAFERON [Suspect]
     Indication: MULTIPLE SCLEROSIS
     Dosage: 250 ?G, QOD
     Route: 058

REACTIONS (3)
  - Myocardial infarction [None]
  - Insomnia [Not Recovered/Not Resolved]
  - Enuresis [Not Recovered/Not Resolved]
